FAERS Safety Report 7708599-4 (Version None)
Quarter: 2011Q3

REPORT INFORMATION
  Report Type: 
  Country: None (occurrence: None)
  Receive Date: 20110819
  Receipt Date: 20110803
  Transmission Date: 20111222
  Serious: Yes (Death, Other)
  Sender: FDA-Public Use
  Company Number: 2011MA003503

PATIENT
  Sex: Male
  Weight: 146 kg

DRUGS (17)
  1. MINOCIN [Concomitant]
  2. NORVIR [Concomitant]
  3. NORTRIPTYLINE HCL [Concomitant]
  4. REYATAZ [Concomitant]
  5. TRIVADA [Concomitant]
  6. BACLOFEN [Concomitant]
  7. BACTROBAN [Concomitant]
  8. PERCOCET [Concomitant]
  9. ZANAFLEX [Concomitant]
  10. METOCLOPRAMIDE [Suspect]
     Indication: NAUSEA
     Dosage: 10 MG
     Dates: start: 19991001, end: 20090701
  11. METOCLOPRAMIDE [Suspect]
     Indication: VOMITING
     Dosage: 10 MG
     Dates: start: 19991001, end: 20090701
  12. TIGAN [Concomitant]
  13. SUBUTEX [Concomitant]
  14. BACTRIM [Concomitant]
  15. CITALOPRAM [Concomitant]
  16. DOXEPIN [Concomitant]
  17. SUBOXONE [Concomitant]

REACTIONS (20)
  - EMOTIONAL DISORDER [None]
  - TARDIVE DYSKINESIA [None]
  - FAMILY STRESS [None]
  - HEMIPARESIS [None]
  - CEREBRAL TOXOPLASMOSIS [None]
  - NEUROPATHY PERIPHERAL [None]
  - TREMOR [None]
  - CLONUS [None]
  - EXTRAPYRAMIDAL DISORDER [None]
  - BACK PAIN [None]
  - STAPHYLOCOCCAL INFECTION [None]
  - HYPERREFLEXIA [None]
  - DERMATITIS [None]
  - DYSPEPSIA [None]
  - INJURY [None]
  - BALANCE DISORDER [None]
  - ECONOMIC PROBLEM [None]
  - DRY MOUTH [None]
  - GASTROOESOPHAGEAL REFLUX DISEASE [None]
  - HIV INFECTION [None]
